FAERS Safety Report 16939510 (Version 1)
Quarter: 2019Q4

REPORT INFORMATION
  Report Type: Spontaneous
  Country: US (occurrence: US)
  Receive Date: 20191021
  Receipt Date: 20191021
  Transmission Date: 20200122
  Serious: Yes (Hospitalization, Other)
  Sender: FDA-Public Use
  Company Number: US-STRIDES ARCOLAB LIMITED-2019SP010104

PATIENT
  Age: 59 Year
  Sex: Female

DRUGS (7)
  1. VANCOMYCIN [Suspect]
     Active Substance: VANCOMYCIN
     Dosage: 250 MILLIGRAM, EVERY 6 HRS (DOSE REDUCED)
     Route: 054
  2. VANCOMYCIN [Suspect]
     Active Substance: VANCOMYCIN
     Indication: CLOSTRIDIUM DIFFICILE COLITIS
     Dosage: UNK
     Route: 042
  3. VANCOMYCIN [Suspect]
     Active Substance: VANCOMYCIN
     Indication: EVIDENCE BASED TREATMENT
     Dosage: 500 MILLIGRAM, EVERY 6 HRS
     Route: 054
  4. VORICONAZOLE. [Concomitant]
     Active Substance: VORICONAZOLE
     Indication: ANTIFUNGAL PROPHYLAXIS
     Dosage: UNK
     Route: 065
  5. VANCOMYCIN [Suspect]
     Active Substance: VANCOMYCIN
     Dosage: 500 MILLIGRAM, EVERY 6 HRS
     Route: 048
  6. MEROPENEM. [Concomitant]
     Active Substance: MEROPENEM
     Indication: EVIDENCE BASED TREATMENT
     Dosage: UNK
     Route: 065
  7. METRONIDAZOLE. [Concomitant]
     Active Substance: METRONIDAZOLE
     Indication: CLOSTRIDIUM DIFFICILE COLITIS
     Dosage: UNK
     Route: 042

REACTIONS (10)
  - Hypoacusis [Recovered/Resolved]
  - Endocarditis [Recovered/Resolved]
  - Nephropathy toxic [Recovered/Resolved]
  - Cerebral infarction [Recovered/Resolved]
  - Deep vein thrombosis [Recovered/Resolved]
  - Toxicity to various agents [Recovered/Resolved]
  - Staphylococcal infection [Recovered/Resolved]
  - Gastrointestinal wall thickening [Recovered/Resolved]
  - Areflexia [Recovered/Resolved]
  - Quadriplegia [Recovered/Resolved]
